FAERS Safety Report 5092228-5 (Version None)
Quarter: 2006Q3

REPORT INFORMATION
  Report Type: 
  Country: None (occurrence: None)
  Receive Date: 20060828
  Receipt Date: 20060828
  Transmission Date: 20061208
  Serious: Yes (Hospitalization)
  Sender: FDA-Public Use
  Company Number: None

PATIENT
  Age: 46 Year
  Sex: Female
  Weight: 76.2 kg

DRUGS (2)
  1. ONDANSETRON [Suspect]
     Indication: BREAST OPERATION
     Dosage: 4 MG ONCE IV BOLUS
     Route: 040
     Dates: start: 20060823
  2. ONDANSETRON [Suspect]
     Indication: PROPHYLAXIS
     Dosage: 4 MG ONCE IV BOLUS
     Route: 040
     Dates: start: 20060823

REACTIONS (20)
  - BRADYCARDIA [None]
  - CHEST DISCOMFORT [None]
  - CHEST PAIN [None]
  - COLD SWEAT [None]
  - DIZZINESS [None]
  - DRUG HYPERSENSITIVITY [None]
  - ERYTHEMA [None]
  - FEELING COLD [None]
  - HEART RATE INCREASED [None]
  - HYPERTENSION [None]
  - HYPERVENTILATION [None]
  - HYPOAESTHESIA [None]
  - HYPOTENSION [None]
  - INFUSION SITE PAIN [None]
  - MUSCLE RIGIDITY [None]
  - NASOPHARYNGEAL DISORDER [None]
  - OEDEMA PERIPHERAL [None]
  - OXYGEN SATURATION DECREASED [None]
  - PARAESTHESIA [None]
  - SYNCOPE VASOVAGAL [None]
